FAERS Safety Report 17216324 (Version 1)
Quarter: 2019Q4

REPORT INFORMATION
  Report Type: Report from Study
  Country: US (occurrence: US)
  Receive Date: 20191230
  Receipt Date: 20191230
  Transmission Date: 20200122
  Serious: Yes (Other)
  Sender: FDA-Public Use
  Company Number: US-CLOVIS ONCOLOGY-CLO-2019-002536

PATIENT
  Age: 77 Year
  Sex: Male
  Weight: 85.4 kg

DRUGS (3)
  1. TRAMADOL. [Suspect]
     Active Substance: TRAMADOL
     Indication: PRODUCT USED FOR UNKNOWN INDICATION
  2. MARINOL                            /00003301/ [Suspect]
     Active Substance: ALLOPURINOL
     Indication: PRODUCT USED FOR UNKNOWN INDICATION
  3. RUCAPARIB [Suspect]
     Active Substance: RUCAPARIB
     Indication: LUNG ADENOCARCINOMA
     Dosage: 600 MG, BID
     Route: 048
     Dates: start: 20190524

REACTIONS (1)
  - Constipation [Recovered/Resolved]

NARRATIVE: CASE EVENT DATE: 20190609
